FAERS Safety Report 24659386 (Version 2)
Quarter: 2024Q4

REPORT INFORMATION
  Report Type: Report from Study
  Country: BR (occurrence: BR)
  Receive Date: 20241125
  Receipt Date: 20241202
  Transmission Date: 20250115
  Serious: Yes (Other)
  Sender: ELI LILLY AND COMPANY
  Company Number: BR-ELI_LILLY_AND_COMPANY-BR202411010920

PATIENT
  Age: 55 Year
  Sex: Female

DRUGS (1)
  1. ABEMACICLIB [Suspect]
     Active Substance: ABEMACICLIB
     Indication: Product used for unknown indication
     Dosage: 150 MG, UNKNOWN
     Route: 048
     Dates: start: 20241114

REACTIONS (7)
  - Metastases to central nervous system [Unknown]
  - Headache [Unknown]
  - Dizziness [Unknown]
  - Visual impairment [Unknown]
  - Ageusia [Unknown]
  - Nausea [Unknown]
  - Dysgeusia [Unknown]

NARRATIVE: CASE EVENT DATE: 20241118
